FAERS Safety Report 7073418-9 (Version None)
Quarter: 2010Q4

REPORT INFORMATION
  Report Type: 
  Country: None (occurrence: None)
  Receive Date: 20101029
  Receipt Date: 20100615
  Transmission Date: 20110411
  Serious: No
  Sender: FDA-Public Use
  Company Number: A0865278A

PATIENT
  Age: 77 Year
  Sex: Male

DRUGS (10)
  1. ADVAIR DISKUS 100/50 [Suspect]
     Indication: COUGH
     Dosage: 1PUFF TWICE PER DAY
     Route: 055
     Dates: start: 20100608
  2. LISINOPRIL [Concomitant]
  3. TERAZOSIN HCL [Concomitant]
  4. METFORMIN [Concomitant]
  5. ASPIRIN [Concomitant]
  6. ALPHAGAN [Concomitant]
  7. PRILOSEC [Concomitant]
  8. DOXYCYCLINE [Concomitant]
  9. VITAMIN D [Concomitant]
  10. VITAMIN B-12 [Concomitant]

REACTIONS (2)
  - DYSPHONIA [None]
  - HAEMORRHAGE SUBCUTANEOUS [None]
